FAERS Safety Report 5228015-4 (Version None)
Quarter: 2007Q1

REPORT INFORMATION
  Report Type: 
  Country: None (occurrence: None)
  Receive Date: 20061205
  Receipt Date: 20060807
  Transmission Date: 20070707
  Serious: No
  Sender: FDA-Public Use
  Company Number: PHEH2006US08987

PATIENT
  Age: 79 Year
  Sex: Male
  Weight: 91.6 kg

DRUGS (7)
  1. EXJADE [Suspect]
     Indication: IRON OVERLOAD
     Dosage: 4 TABLETS, QD, ORAL
     Route: 048
     Dates: start: 20060301, end: 20060713
  2. INSULIN [Concomitant]
  3. SINGULAIR [Concomitant]
  4. LASIX [Concomitant]
  5. GLYBURIDE [Concomitant]
  6. ADVAIR DISKUS 100/50 [Concomitant]
  7. ALLOPURINOL [Concomitant]

REACTIONS (6)
  - DIARRHOEA [None]
  - ECZEMA [None]
  - EXCORIATION [None]
  - PRURITUS [None]
  - SCAB [None]
  - SKIN EXFOLIATION [None]
